FAERS Safety Report 6241523-2 (Version None)
Quarter: 2009Q2

REPORT INFORMATION
  Report Type: 
  Country: None (occurrence: None)
  Receive Date: 20090623
  Receipt Date: 20040203
  Transmission Date: 20091009
  Serious: Yes (Hospitalization)
  Sender: FDA-Public Use
  Company Number: DE-ROCHE-357988

PATIENT
  Sex: Male
  Weight: 68.5 kg

DRUGS (28)
  1. DACLIZUMAB [Suspect]
     Route: 042
     Dates: start: 20031202
  2. DACLIZUMAB [Suspect]
     Dosage: DOSE ON WEEK 2 VISIT
     Route: 042
     Dates: start: 20031215
  3. DACLIZUMAB [Suspect]
     Dosage: WEEK 4 VISIT
     Route: 042
     Dates: start: 20031229
  4. MYCOPHENOLATE MOFETIL [Suspect]
     Dosage: DRUG: MYCOPHENOLAT MOFETIL
     Route: 048
     Dates: start: 20031202, end: 20031223
  5. MYCOPHENOLATE MOFETIL [Suspect]
     Route: 048
     Dates: start: 20031224, end: 20031224
  6. MYCOPHENOLATE MOFETIL [Suspect]
     Route: 048
     Dates: start: 20031225, end: 20040114
  7. MYCOPHENOLATE MOFETIL [Suspect]
     Route: 048
     Dates: start: 20040115, end: 20040116
  8. MYCOPHENOLATE MOFETIL [Suspect]
     Route: 048
     Dates: start: 20040130, end: 20040324
  9. MYCOPHENOLATE MOFETIL [Suspect]
     Route: 048
     Dates: start: 20040325, end: 20040326
  10. TACROLIMUS [Suspect]
     Route: 048
     Dates: start: 20031225, end: 20040116
  11. TACROLIMUS [Suspect]
     Route: 048
     Dates: start: 20040117
  12. PREDNISOLONE [Suspect]
     Route: 042
     Dates: start: 20031202, end: 20031218
  13. PREDNISOLONE [Suspect]
     Route: 042
     Dates: start: 20031226, end: 20031229
  14. PREDNISOLONE [Suspect]
     Route: 048
     Dates: start: 20031219, end: 20031225
  15. SIROLIMUS [Suspect]
     Route: 048
     Dates: start: 20031202, end: 20031224
  16. BISOPROLOL FUMARATE [Concomitant]
     Route: 048
     Dates: start: 20031205
  17. FELODIPINE [Concomitant]
     Route: 048
     Dates: start: 20031204
  18. CEFUROXIME [Concomitant]
     Route: 042
     Dates: start: 20031202, end: 20031206
  19. CIPROFLOXACIN [Concomitant]
     Route: 048
     Dates: start: 20031208, end: 20031209
  20. FUROSEMID [Concomitant]
     Route: 042
     Dates: end: 20031214
  21. FUROSEMID [Concomitant]
     Route: 042
     Dates: start: 20040105, end: 20040106
  22. FUROSEMID [Concomitant]
     Route: 042
     Dates: start: 20041210
  23. IMIPENEM AND CILASTATIN SODIUM [Concomitant]
     Dosage: DRUG: IMIPENEM/CILASTATIN
     Route: 042
     Dates: start: 20031217, end: 20031223
  24. IMIPENEM AND CILASTATIN SODIUM [Concomitant]
     Route: 042
     Dates: start: 20031231, end: 20040106
  25. PANTOPRAZOL [Concomitant]
     Route: 042
     Dates: start: 20031202, end: 20031203
  26. PANTOPRAZOL [Concomitant]
     Route: 048
     Dates: start: 20031204
  27. SUPRACOMBIN [Concomitant]
     Route: 048
     Dates: start: 20031206, end: 20031227
  28. PREDNISONE [Suspect]
     Dosage: DRUG: PREDNISON
     Route: 048
     Dates: start: 20031204

REACTIONS (3)
  - DIARRHOEA [None]
  - HYPERCALCAEMIA [None]
  - URINARY TRACT INFECTION [None]
